FAERS Safety Report 9749944 (Version 1)
Quarter: 2013Q4

REPORT INFORMATION
  Report Type: Spontaneous
  Country: US (occurrence: US)
  Receive Date: 20131212
  Receipt Date: 20131212
  Transmission Date: 20140711
  Serious: No
  Sender: FDA-Public Use
  Company Number: US-009507513-1312USA005718

PATIENT
  Sex: Male

DRUGS (2)
  1. CORICIDIN HBP COLD AND FLU [Suspect]
     Indication: RESPIRATORY TRACT CONGESTION
     Dosage: UNK, PRN
     Route: 048
  2. CORICIDIN HBP COLD AND FLU [Suspect]
     Indication: COUGH

REACTIONS (2)
  - Drug administration error [Unknown]
  - Drug ineffective [Unknown]
